FAERS Safety Report 9401491 (Version 2)
Quarter: 2013Q4

REPORT INFORMATION
  Report Type: Spontaneous
  Country: US (occurrence: US)
  Receive Date: 20130716
  Receipt Date: 20131003
  Transmission Date: 20140711
  Serious: No
  Sender: FDA-Public Use
  Company Number: US-009507513-1307USA005858

PATIENT
  Age: 25 Year
  Sex: Female
  Weight: 81.18 kg

DRUGS (8)
  1. IMPLANON [Suspect]
     Indication: CONTRACEPTION
     Dosage: 1 DF, UNK
     Route: 059
     Dates: start: 20130529
  2. ZYRTEC [Concomitant]
  3. ALBUTEROL [Concomitant]
  4. ADVAIR [Concomitant]
  5. SINGULAIR [Concomitant]
  6. PRILOSEC [Concomitant]
  7. ZANTAC [Concomitant]
  8. TRIAMCINOLONE [Concomitant]

REACTIONS (3)
  - Device dislocation [Recovering/Resolving]
  - Weight decreased [Unknown]
  - Amenorrhoea [Unknown]
